FAERS Safety Report 6399265-9 (Version None)
Quarter: 2009Q4

REPORT INFORMATION
  Report Type: 
  Country: None (occurrence: None)
  Receive Date: 20091014
  Receipt Date: 20071004
  Transmission Date: 20100525
  Serious: Yes (Other)
  Sender: FDA-Public Use
  Company Number: US-ASTRAZENECA-2006UW23210

PATIENT
  Age: 49 Year
  Sex: Female
  Weight: 83 kg

DRUGS (9)
  1. SEROQUEL [Suspect]
     Indication: DEPRESSION
     Route: 048
     Dates: start: 20030109
  2. SEROQUEL [Suspect]
     Indication: STRESS
     Route: 048
     Dates: start: 20030109
  3. SEROQUEL [Suspect]
     Indication: ANXIETY
     Route: 048
     Dates: start: 20030109
  4. SEROQUEL [Suspect]
     Indication: SLEEP DISORDER
     Route: 048
     Dates: start: 20030109
  5. TRAZODONE [Concomitant]
     Route: 048
     Dates: start: 20030109
  6. ATENOLOL [Concomitant]
     Indication: PALPITATIONS
     Dosage: 50-100 MG
     Route: 048
     Dates: start: 20030109
  7. ATENOLOL [Concomitant]
     Indication: HYPERTENSION
     Dosage: 50-100 MG
     Route: 048
     Dates: start: 20030109
  8. HYDROCHLOROTHIAZIDE [Concomitant]
     Route: 048
     Dates: start: 20030610
  9. NORTRIPTYLINE [Concomitant]
     Indication: NEURALGIA
     Route: 048
     Dates: start: 20050204

REACTIONS (4)
  - DIABETES MELLITUS [None]
  - DIABETIC NEUROPATHY [None]
  - NEUROPATHY PERIPHERAL [None]
  - TYPE 2 DIABETES MELLITUS [None]
